FAERS Safety Report 11228167 (Version 1)
Quarter: 2015Q2

REPORT INFORMATION
  Report Type: Spontaneous
  Country: GB (occurrence: GB)
  Receive Date: 20150630
  Receipt Date: 20150630
  Transmission Date: 20150821
  Serious: Yes (Life-Threatening, Hospitalization)
  Sender: FDA-Public Use
  Company Number: GB-SA-2015SA093588

PATIENT
  Age: 0 Day
  Sex: Female
  Weight: 3.4 kg

DRUGS (2)
  1. APIDRA [Suspect]
     Active Substance: INSULIN GLULISINE
     Indication: MATERNAL EXPOSURE TIMING UNSPECIFIED
     Dosage: DOSE:66.7 UNIT(S)
     Route: 063
     Dates: start: 20150125
  2. APIDRA [Suspect]
     Active Substance: INSULIN GLULISINE
     Indication: MATERNAL EXPOSURE TIMING UNSPECIFIED
     Dosage: DOSE:66.7 UNIT(S)
     Route: 064
     Dates: start: 20150125, end: 20150125

REACTIONS (5)
  - Hypoglycaemia neonatal [Recovered/Resolved]
  - Foetal exposure during pregnancy [Unknown]
  - Jaundice [Recovered/Resolved]
  - Exposure during breast feeding [Unknown]
  - Unresponsive to stimuli [Recovered/Resolved]

NARRATIVE: CASE EVENT DATE: 201501
